FAERS Safety Report 4860070-3 (Version None)
Quarter: 2005Q4

REPORT INFORMATION
  Report Type: 
  Country: None (occurrence: None)
  Receive Date: 20051219
  Receipt Date: 20051208
  Transmission Date: 20060501
  Serious: Yes (Other)
  Sender: FDA-Public Use
  Company Number: US-ROCHE-428030

PATIENT
  Sex: Male

DRUGS (3)
  1. FORTOVASE [Suspect]
     Dates: start: 20041021, end: 20050315
  2. NORVIR [Suspect]
     Dates: start: 20041021, end: 20050315
  3. COMBIVIR [Suspect]
     Dates: start: 20041021, end: 20050315

REACTIONS (3)
  - DRUG EXPOSURE DURING PREGNANCY [None]
  - STILLBIRTH [None]
  - UMBILICAL CORD AROUND NECK [None]
